FAERS Safety Report 8682739 (Version 3)
Quarter: 2012Q4

REPORT INFORMATION
  Report Type: 
  Country: AU (occurrence: AU)
  Receive Date: 20120725
  Receipt Date: 20120926
  Transmission Date: 20130627
  Serious: Yes (Hospitalization, Other)
  Sender: FDA-Public Use
  Company Number: PHHY2012AU062359

PATIENT
  Age: 15 Year
  Sex: Female

DRUGS (2)
  1. CLOZARIL [Suspect]
     Dates: start: 20120424
  2. LITHIUM [Concomitant]
     Dosage: 250 mg

REACTIONS (7)
  - Influenza [Unknown]
  - Upper respiratory tract infection [Unknown]
  - Pyrexia [Unknown]
  - Pancytopenia [Unknown]
  - White blood cell count decreased [Recovered/Resolved]
  - Neutropenia [Unknown]
  - Neutrophil count decreased [Recovered/Resolved]
